FAERS Safety Report 9352766 (Version 5)
Quarter: 2013Q3

REPORT INFORMATION
  Report Type: Spontaneous
  Country: FR (occurrence: FR)
  Receive Date: 20130618
  Receipt Date: 20130906
  Transmission Date: 20140515
  Serious: Yes (Hospitalization)
  Sender: FDA-Public Use
  Company Number: FR-ROCHE-1236174

PATIENT
  Age: 62 Year
  Sex: Female

DRUGS (3)
  1. ROACTEMRA [Suspect]
     Indication: RHEUMATOID ARTHRITIS
     Dosage: MOST RECENT DOSE PRIOR TO SAE WAS IN FEBRUARY 2013
     Route: 042
     Dates: start: 20100603, end: 20130207
  2. ROACTEMRA [Suspect]
     Route: 065
     Dates: start: 20121030
  3. ROACTEMRA [Suspect]
     Route: 065
     Dates: start: 20130307, end: 20130320

REACTIONS (3)
  - Osteitis [Recovered/Resolved]
  - Abscess limb [Recovered/Resolved]
  - Cellulitis [Recovered/Resolved]
